FAERS Safety Report 20175020 (Version 1)
Quarter: 2021Q4

REPORT INFORMATION
  Report Type: Spontaneous
  Country: CL (occurrence: CL)
  Receive Date: 20211213
  Receipt Date: 20211213
  Transmission Date: 20220303
  Serious: Yes (Life-Threatening, Hospitalization, Other)
  Sender: FDA-Public Use
  Company Number: CL-MLMSERVICE-20211125-3237739-1

PATIENT
  Age: 36 Year
  Sex: Male

DRUGS (9)
  1. QUETIAPINE FUMARATE [Suspect]
     Active Substance: QUETIAPINE FUMARATE
     Indication: Delirium
  2. HALOPERIDOL [Suspect]
     Active Substance: HALOPERIDOL
     Indication: Delirium
  3. RISPERIDONE [Suspect]
     Active Substance: RISPERIDONE
     Indication: Delirium
  4. FENTANYL [Concomitant]
     Active Substance: FENTANYL
     Indication: Sedation
  5. MIDAZOLAM [Concomitant]
     Active Substance: MIDAZOLAM
     Indication: Sedation
  6. DEXMEDETOMIDINE [Concomitant]
     Active Substance: DEXMEDETOMIDINE
  7. BISOPROLOL [Concomitant]
     Active Substance: BISOPROLOL
  8. PROPOFOL [Concomitant]
     Active Substance: PROPOFOL
     Indication: Sedation
  9. CLONIDINE [Concomitant]
     Active Substance: CLONIDINE

REACTIONS (1)
  - Malignant catatonia [Recovered/Resolved]
